FAERS Safety Report 7791685-0 (Version None)
Quarter: 2011Q4

REPORT INFORMATION
  Report Type: 
  Country: None (occurrence: None)
  Receive Date: 20111003
  Receipt Date: 20110921
  Transmission Date: 20120403
  Serious: Yes (Hospitalization)
  Sender: FDA-Public Use
  Company Number: ES-JNJFOC-20101104304

PATIENT
  Age: 74 Year
  Sex: Female
  Weight: 95 kg

DRUGS (6)
  1. HYDROCHLOROTHIAZIDE [Concomitant]
     Indication: HYPERTENSION
  2. IMURAN [Concomitant]
     Indication: ILEITIS
     Route: 048
     Dates: start: 20010101
  3. REMICADE [Suspect]
     Indication: CROHN'S DISEASE
     Route: 042
     Dates: start: 20030101
  4. FOSAMAX [Concomitant]
  5. PREDNISONE [Concomitant]
     Indication: SPONDYLOARTHROPATHY
     Route: 048
  6. LORAZEPAM [Concomitant]
     Indication: INSOMNIA

REACTIONS (5)
  - BACILLARY ANGIOMATOSIS [None]
  - CAMPYLOBACTER INFECTION [None]
  - CAT SCRATCH DISEASE [None]
  - SEPTIC SHOCK [None]
  - MENINGIOMA [None]
